FAERS Safety Report 11561307 (Version 3)
Quarter: 2016Q1

REPORT INFORMATION
  Report Type: Spontaneous
  Country: US (occurrence: US)
  Receive Date: 20150928
  Receipt Date: 20160115
  Transmission Date: 20160525
  Serious: Yes (Death, Other)
  Sender: FDA-Public Use
  Company Number: US-PFIZER INC-2015308851

PATIENT
  Age: 74 Year
  Sex: Female
  Weight: 74.38 kg

DRUGS (3)
  1. SUTENT [Suspect]
     Active Substance: SUNITINIB MALATE
     Indication: RENAL CANCER
     Dosage: 37.5 MG (THREE 12.5MG CAPSULES) 1X/DAY
     Route: 048
     Dates: start: 2015
  2. SUTENT [Suspect]
     Active Substance: SUNITINIB MALATE
     Indication: RENAL CELL CARCINOMA
     Dosage: 50 MG, CYCLIC (4 WEEKS ON AND 2 WEEKS OFF)
     Route: 048
     Dates: start: 20150702, end: 2015
  3. SUTENT [Suspect]
     Active Substance: SUNITINIB MALATE
     Dosage: 12.5 MG, CYCLIC (3 DAILY X 14 DAYS Q 21 DAYS)
     Route: 048
     Dates: start: 20150702

REACTIONS (13)
  - Abdominal distension [Unknown]
  - Diarrhoea [Unknown]
  - Malaise [Recovered/Resolved]
  - Stomatitis [Unknown]
  - Drug dose omission [Unknown]
  - Malaise [Unknown]
  - Nausea [Unknown]
  - Constipation [Unknown]
  - Asthenia [Unknown]
  - Unresponsive to stimuli [Unknown]
  - Abdominal pain upper [Unknown]
  - Death [Fatal]
  - Fatigue [Unknown]

NARRATIVE: CASE EVENT DATE: 2015
